FAERS Safety Report 4590131-8 (Version None)
Quarter: 2005Q1

REPORT INFORMATION
  Report Type: 
  Country: None (occurrence: None)
  Receive Date: 20050217
  Receipt Date: 20050204
  Transmission Date: 20050727
  Serious: Yes (Other)
  Sender: FDA-Public Use
  Company Number: 2005018603

PATIENT
  Age: 19 Year
  Sex: Female
  Weight: 55 kg

DRUGS (5)
  1. AZITHROMYCIN [Suspect]
     Indication: NASOPHARYNGITIS
     Dosage: 500 MG (500 MG, 1 IN 1 D), ORAL
     Route: 048
     Dates: start: 20050107, end: 20050109
  2. TOWATHIEN (CAFFEINE, PARACETAMOL, PROMETHAZINE, SALICYLAMIDE0 [Concomitant]
  3. AMBROXOL HYDROCHLORIDE (AMBROXOL HYDROCHLORIDE) [Concomitant]
  4. EPINASTINE HYDROCHLORIDE (EPINASTINE HYDROCHLORIDE) [Concomitant]
  5. DEQUALINIUM CHLORIDE (DEQUALINIUM CHLORIDE) [Concomitant]

REACTIONS (6)
  - BLOOD PRESSURE DECREASED [None]
  - DEPRESSED LEVEL OF CONSCIOUSNESS [None]
  - DIZZINESS [None]
  - FEELING ABNORMAL [None]
  - TREATMENT NONCOMPLIANCE [None]
  - VERTIGO [None]
